FAERS Safety Report 12832026 (Version 2)
Quarter: 2016Q4

REPORT INFORMATION
  Report Type: Report from Study
  Country: US (occurrence: US)
  Receive Date: 20161010
  Receipt Date: 20161013
  Transmission Date: 20170207
  Serious: Yes (Death, Hospitalization, Other)
  Sender: FDA-Public Use
  Company Number: US-ALEXION PHARMACEUTICALS INC.-A201607562

PATIENT
  Sex: Female

DRUGS (1)
  1. SOLIRIS [Suspect]
     Active Substance: ECULIZUMAB
     Indication: HAEMOLYTIC URAEMIC SYNDROME
     Dosage: 1200 MG, Q2W
     Route: 042
     Dates: start: 20140813, end: 20160906

REACTIONS (5)
  - Influenza [Not Recovered/Not Resolved]
  - Ill-defined disorder [Unknown]
  - Cerebrovascular accident [Fatal]
  - Myocardial infarction [Unknown]
  - Pain [Unknown]

NARRATIVE: CASE EVENT DATE: 20161001
